FAERS Safety Report 20998622 (Version 4)
Quarter: 2022Q3

REPORT INFORMATION
  Report Type: Spontaneous
  Country: CO (occurrence: CO)
  Receive Date: 20220623
  Receipt Date: 20220820
  Transmission Date: 20221027
  Serious: Yes (Other)
  Sender: FDA-Public Use
  Company Number: CO-AMGEN-COLSP2022103163

PATIENT
  Age: 84 Year
  Sex: Female
  Weight: 66 kg

DRUGS (3)
  1. MVASI [Suspect]
     Active Substance: BEVACIZUMAB-AWWB
     Indication: Rectal cancer metastatic
     Dosage: 330 MILLIGRAM, Q2WK
     Route: 065
     Dates: start: 20201228, end: 20220523
  2. FLUOROURACIL [Concomitant]
     Active Substance: FLUOROURACIL
     Indication: Rectal cancer metastatic
     Dosage: 3600 MILLIGRAM, Q2WK
     Route: 065
     Dates: start: 20201125, end: 20220523
  3. LEUCOVORIN CALCIUM [Concomitant]
     Active Substance: LEUCOVORIN CALCIUM
     Indication: Rectal cancer metastatic
     Dosage: 500 MILLIGRAM, Q2WK
     Route: 065
     Dates: start: 20201125, end: 20220523

REACTIONS (1)
  - Colorectal cancer metastatic [Recovering/Resolving]

NARRATIVE: CASE EVENT DATE: 20220606
